FAERS Safety Report 4657973-1 (Version None)
Quarter: 2005Q2

REPORT INFORMATION
  Report Type: 
  Country: None (occurrence: None)
  Receive Date: 20050510
  Receipt Date: 20050321
  Transmission Date: 20051028
  Serious: Yes (Other)
  Sender: FDA-Public Use
  Company Number: PHEH2005US03417

PATIENT
  Age: 54 Year
  Sex: Female

DRUGS (8)
  1. ZOMETA [Suspect]
     Indication: BREAST CANCER METASTATIC
     Dosage: 4 MG Q4WKS
     Dates: start: 20020816, end: 20040908
  2. VINORELBINE TARTRATE [Concomitant]
     Indication: BREAST CANCER METASTATIC
     Dosage: 50MG Q3 WKS
     Dates: start: 20031118, end: 20031201
  3. GEMZAR [Concomitant]
     Indication: METASTASES TO BONE
     Dosage: 700 TO 1100MG Q1-2 WKS
     Dates: start: 20030203, end: 20031002
  4. ESTRACE VAGINAL CREAM [Concomitant]
  5. WARFARIN [Concomitant]
     Indication: PROPHYLAXIS
     Dosage: 2.5 MG, QD
  6. ELAVIL [Concomitant]
     Indication: INSOMNIA
  7. VICODIN [Concomitant]
     Indication: PAIN
     Dosage: UNK, PRN
  8. MECLIZINE [Concomitant]
     Indication: DIZZINESS
     Dosage: UNK, PRN

REACTIONS (27)
  - ALBUMIN GLOBULIN RATIO DECREASED [None]
  - APHTHOUS STOMATITIS [None]
  - BONE DEBRIDEMENT [None]
  - BONE DISORDER [None]
  - DISCOMFORT [None]
  - ERYTHEMA [None]
  - FISTULA [None]
  - GLOBULINS INCREASED [None]
  - HAEMATOCRIT DECREASED [None]
  - HAEMOGLOBIN DECREASED [None]
  - HYPERBARIC OXYGEN THERAPY [None]
  - HYPOAESTHESIA [None]
  - HYPOAESTHESIA ORAL [None]
  - INFECTION [None]
  - MEAN PLATELET VOLUME DECREASED [None]
  - METASTASES TO BONE [None]
  - NEUTROPENIA [None]
  - ORAL PAIN [None]
  - ORAL PUSTULE [None]
  - OSTEONECROSIS [None]
  - PAIN [None]
  - PHARYNGOLARYNGEAL PAIN [None]
  - PRIMARY SEQUESTRUM [None]
  - PROTEIN TOTAL INCREASED [None]
  - RED BLOOD CELL COUNT DECREASED [None]
  - SWELLING [None]
  - TOOTH EXTRACTION [None]
